FAERS Safety Report 21740640 (Version 1)
Quarter: 2022Q4

REPORT INFORMATION
  Report Type: Report from Study
  Country: US (occurrence: US)
  Receive Date: 20221216
  Receipt Date: 20221216
  Transmission Date: 20230113
  Serious: Yes (Other)
  Sender: FDA-Public Use
  Company Number: US-ABBVIE-4238058

PATIENT
  Sex: Male

DRUGS (1)
  1. HUMIRA [Suspect]
     Active Substance: ADALIMUMAB
     Indication: Product used for unknown indication
     Dosage: 40MG
     Route: 058
     Dates: start: 2012

REACTIONS (3)
  - Bone marrow disorder [Unknown]
  - Drug specific antibody present [Unknown]
  - Condition aggravated [Unknown]
